FAERS Safety Report 9227423 (Version 3)
Quarter: 2013Q3

REPORT INFORMATION
  Report Type: Report from Study
  Country: NL (occurrence: NL)
  Receive Date: 20130412
  Receipt Date: 20130725
  Transmission Date: 20140515
  Serious: Yes (Hospitalization)
  Sender: FDA-Public Use
  Company Number: NL-MILLENNIUM PHARMACEUTICALS, INC.-2013-02517

PATIENT
  Sex: 0

DRUGS (4)
  1. VELCADE [Suspect]
     Indication: PLASMA CELL MYELOMA
     Route: 065
  2. HYDROXYZINE [Concomitant]
     Indication: MUSCLE SPASMS
     Dosage: 25 MG, UNK
     Route: 048
     Dates: start: 20130322
  3. CLODRONIC ACID [Concomitant]
     Indication: PLASMA CELL MYELOMA
     Dosage: 1040 MG, UNK
     Route: 048
     Dates: start: 20130321, end: 20130321
  4. LISINOPRIL [Concomitant]
     Indication: HYPERTENSION
     Dosage: 10 MG, UNK
     Route: 048
     Dates: start: 20130321, end: 20130321

REACTIONS (1)
  - Streptococcal sepsis [Not Recovered/Not Resolved]
